FAERS Safety Report 4950722-9 (Version None)
Quarter: 2006Q1

REPORT INFORMATION
  Report Type: 
  Country: None (occurrence: None)
  Receive Date: 20060322
  Receipt Date: 20051028
  Transmission Date: 20060701
  Serious: Yes (Other)
  Sender: FDA-Public Use
  Company Number: US-ROCHE-422960

PATIENT
  Sex: Male
  Weight: 3 kg

DRUGS (4)
  1. COPEGUS [Suspect]
     Indication: DRUG USE FOR UNKNOWN INDICATION
     Dates: start: 20050215
  2. PEGASYS [Suspect]
     Indication: DRUG USE FOR UNKNOWN INDICATION
     Dates: start: 20050215
  3. CYMBALTA [Concomitant]
     Indication: DEPRESSION
     Dates: end: 20050626
  4. PROZAC [Concomitant]
     Indication: DEPRESSION

REACTIONS (5)
  - ALPHA 1 FOETOPROTEIN AMNIOTIC FLUID ABNORMAL [None]
  - ALPHA 1 FOETOPROTEIN AMNIOTIC FLUID DECREASED [None]
  - LIVE BIRTH [None]
  - PLACENTA PRAEVIA [None]
  - TRANSMISSION OF DRUG VIA SEMEN [None]
